FAERS Safety Report 6716262-1 (Version None)
Quarter: 2010Q2

REPORT INFORMATION
  Report Type: 
  Country: None (occurrence: None)
  Receive Date: 20100507
  Receipt Date: 20100430
  Transmission Date: 20101027
  Serious: No
  Sender: FDA-Public Use
  Company Number: B0632330A

PATIENT
  Sex: Female

DRUGS (6)
  1. ZANAMIVIR [Suspect]
     Dosage: 600MG TWICE PER DAY
     Route: 042
     Dates: start: 20091231, end: 20100104
  2. PANTOZOL [Concomitant]
     Dosage: 40MG PER DAY
     Route: 042
     Dates: start: 20091231
  3. AMPICILLIN AND SULBACTAM [Concomitant]
     Dosage: 9G PER DAY
     Route: 042
     Dates: start: 20091230
  4. ERYTHROMYCIN [Concomitant]
     Dosage: 4G PER DAY
     Route: 042
     Dates: start: 20091230
  5. FENTANYL [Concomitant]
     Route: 042
     Dates: start: 20091230
  6. MIDAZOLAM HCL [Concomitant]
     Route: 042
     Dates: start: 20091230

REACTIONS (2)
  - DRUG EXPOSURE DURING PREGNANCY [None]
  - LIVE BIRTH [None]
